FAERS Safety Report 8462226-X (Version None)
Quarter: 2012Q2

REPORT INFORMATION
  Report Type: 
  Country: None (occurrence: None)
  Receive Date: 20120625
  Receipt Date: 20120621
  Transmission Date: 20120825
  Serious: Yes (Other)
  Sender: FDA-Public Use
  Company Number: PHHY2012GB053237

PATIENT
  Sex: Female

DRUGS (1)
  1. OXCARBAZEPINE [Suspect]
     Indication: PAROXYSMAL CHOREOATHETOSIS

REACTIONS (6)
  - PAIN [None]
  - MUSCLE SPASMS [None]
  - DISCOMFORT [None]
  - TONGUE SPASM [None]
  - TENSION [None]
  - PAROXYSMAL CHOREOATHETOSIS [None]
